FAERS Safety Report 13571518 (Version 1)
Quarter: 2017Q2

REPORT INFORMATION
  Report Type: Spontaneous
  Country: US (occurrence: US)
  Receive Date: 20170523
  Receipt Date: 20170523
  Transmission Date: 20170830
  Serious: No
  Sender: FDA-Public Use
  Company Number: US-PFIZER INC-2017220044

PATIENT
  Sex: Male

DRUGS (1)
  1. XELJANZ [Suspect]
     Active Substance: TOFACITINIB CITRATE
     Dosage: 5 MG, UNK

REACTIONS (11)
  - Back pain [Unknown]
  - Musculoskeletal stiffness [Unknown]
  - Tinnitus [Unknown]
  - Hypoacusis [Unknown]
  - Varicose vein [Unknown]
  - Synovitis [Unknown]
  - Joint range of motion decreased [Unknown]
  - Neck pain [Unknown]
  - Nervous system disorder [Unknown]
  - Nodule [Unknown]
  - Blood pressure increased [Unknown]
